FAERS Safety Report 4910177-7 (Version None)
Quarter: 2006Q1

REPORT INFORMATION
  Report Type: 
  Country: None (occurrence: None)
  Receive Date: 20060209
  Receipt Date: 20060119
  Transmission Date: 20060701
  Serious: Yes (Other)
  Sender: FDA-Public Use
  Company Number: US200601003428

PATIENT
  Age: 48 Year
  Sex: Male

DRUGS (3)
  1. HUMULIN R [Suspect]
     Indication: DIABETES MELLITUS INSULIN-DEPENDENT
     Dates: start: 19960101
  2. HUMULIN N [Suspect]
     Indication: DIABETES MELLITUS INSULIN-DEPENDENT
     Dates: start: 19960101
  3. INSULIN [Suspect]

REACTIONS (6)
  - BLOOD GLUCOSE FLUCTUATION [None]
  - CEREBRAL HAEMORRHAGE [None]
  - CRYING [None]
  - DIABETES MELLITUS INADEQUATE CONTROL [None]
  - EMOTIONAL DISTRESS [None]
  - SKIN PAPILLOMA [None]
